FAERS Safety Report 19820443 (Version 2)
Quarter: 2021Q3

REPORT INFORMATION
  Report Type: Spontaneous
  Country: AU (occurrence: AU)
  Receive Date: 20210913
  Receipt Date: 20210916
  Transmission Date: 20211014
  Serious: Yes (Other)
  Sender: FDA-Public Use
  Company Number: AU-AMGEN-AUSSP2021140337

PATIENT
  Age: 23 Year
  Sex: Female

DRUGS (7)
  1. CORALAN [Suspect]
     Active Substance: IVABRADINE HYDROCHLORIDE
     Indication: SYNCOPE
     Dosage: 5 MG, BID
     Route: 048
     Dates: start: 20210831, end: 20210901
  2. CORALAN [Suspect]
     Active Substance: IVABRADINE HYDROCHLORIDE
     Indication: POSTURAL ORTHOSTATIC TACHYCARDIA SYNDROME
     Dosage: 5 MG, QD
     Route: 048
     Dates: start: 20210902, end: 20210903
  3. LEVLEN [Concomitant]
     Active Substance: ETHINYL ESTRADIOL\LEVONORGESTREL
     Indication: ENDOMETRIOSIS
     Dosage: UNK
     Route: 048
     Dates: start: 2018
  4. MIDODRINE [Concomitant]
     Active Substance: MIDODRINE
     Indication: SYNCOPE
     Dosage: 5 MG, QD
     Route: 048
     Dates: start: 202107
  5. MIDODRINE [Concomitant]
     Active Substance: MIDODRINE
     Indication: POSTURAL ORTHOSTATIC TACHYCARDIA SYNDROME
     Dosage: UNK
  6. CORALAN [Suspect]
     Active Substance: IVABRADINE HYDROCHLORIDE
     Dosage: UNK
     Route: 065
  7. LEXAPRO [Concomitant]
     Active Substance: ESCITALOPRAM OXALATE
     Indication: POSTURAL ORTHOSTATIC TACHYCARDIA SYNDROME
     Dosage: 20 MG, QD
     Route: 048
     Dates: start: 202107

REACTIONS (10)
  - Syncope [Recovering/Resolving]
  - Fatigue [Recovering/Resolving]
  - Diarrhoea [Recovering/Resolving]
  - Retching [Recovering/Resolving]
  - Off label use [Unknown]
  - Pallor [Recovering/Resolving]
  - Lethargy [Recovering/Resolving]
  - Vomiting [Recovering/Resolving]
  - Abdominal discomfort [Recovering/Resolving]
  - Abdominal pain upper [Recovering/Resolving]

NARRATIVE: CASE EVENT DATE: 20210901
